FAERS Safety Report 8332148-3 (Version None)
Quarter: 2012Q2

REPORT INFORMATION
  Report Type: 
  Country: None (occurrence: None)
  Receive Date: 20120503
  Receipt Date: 20120419
  Transmission Date: 20120825
  Serious: Yes (Other)
  Sender: FDA-Public Use
  Company Number: US-JNJCP-30000102293

PATIENT
  Sex: Female

DRUGS (1)
  1. NEUTROGENAA? PRODUCTS [Suspect]
     Route: 061

REACTIONS (1)
  - MALIGNANT MELANOMA [None]
